FAERS Safety Report 9033073 (Version 1)
Quarter: 2013Q1

REPORT INFORMATION
  Report Type: Spontaneous
  Country: SE (occurrence: SE)
  Receive Date: 20130128
  Receipt Date: 20130128
  Transmission Date: 20140127
  Serious: Yes (Death, Hospitalization, Other)
  Sender: FDA-Public Use
  Company Number: SE-UCBSA-076196

PATIENT
  Age: 77 Year
  Sex: Male

DRUGS (4)
  1. KEPPRA [Suspect]
     Indication: EPILEPSY
     Dosage: UNKNOWN
     Route: 048
     Dates: start: 201209, end: 20121006
  2. KEPPRA [Suspect]
     Indication: EPILEPSY
     Dosage: HALVED THE DOSE, UNKNOWN DOSE
     Route: 048
     Dates: start: 20121006
  3. TROMBYL [Concomitant]
     Dosage: 75 MG
  4. DOXYFERM [Concomitant]
     Dosage: 100 MG

REACTIONS (4)
  - Pulmonary embolism [Fatal]
  - Coordination abnormal [Unknown]
  - Diarrhoea [Unknown]
  - Decreased appetite [Unknown]
